FAERS Safety Report 7574314-0 (Version None)
Quarter: 2011Q2

REPORT INFORMATION
  Report Type: 
  Country: None (occurrence: None)
  Receive Date: 20110627
  Receipt Date: 20110412
  Transmission Date: 20111010
  Serious: Yes (Hospitalization)
  Sender: FDA-Public Use
  Company Number: US-BAYER-201041555NA

PATIENT
  Age: 30 Year
  Sex: Female
  Weight: 52.608 kg

DRUGS (4)
  1. SINGULAIR [Concomitant]
     Indication: RHINITIS ALLERGIC
     Dosage: UNK UNK, QD
     Route: 048
     Dates: start: 20060913
  2. YAZ [Suspect]
     Dosage: UNK
  3. SINGULAIR [Concomitant]
     Indication: ASTHMA
  4. ALBUTEROL SULFATE AUTOHALER [Concomitant]
     Indication: ASTHMA

REACTIONS (3)
  - PULMONARY EMBOLISM [None]
  - CHEST PAIN [None]
  - PNEUMONIA [None]
